FAERS Safety Report 19064486 (Version 1)
Quarter: 2021Q1

REPORT INFORMATION
  Report Type: Report from Study
  Country: FR (occurrence: FR)
  Receive Date: 20210326
  Receipt Date: 20210326
  Transmission Date: 20210420
  Serious: Yes (Other)
  Sender: FDA-Public Use
  Company Number: FR-PFIZER INC-2021292721

PATIENT
  Age: 57 Year
  Sex: Female

DRUGS (6)
  1. TUCATINIB [Suspect]
     Active Substance: TUCATINIB
     Indication: HER2 POSITIVE BREAST CANCER
     Dosage: 300 MG, 2X/DAY
     Route: 048
     Dates: start: 20210105, end: 20210223
  2. LAMOTRIGINE. [Concomitant]
     Active Substance: LAMOTRIGINE
     Dosage: UNK
     Dates: start: 20190701
  3. CAPECITABINE. [Suspect]
     Active Substance: CAPECITABINE
     Indication: HER2 POSITIVE BREAST CANCER
     Dosage: 1000 MG/M2, 2X/DAY
     Route: 048
  4. PREDNISOLONE. [Concomitant]
     Active Substance: PREDNISOLONE
     Indication: EPILEPSY
     Dosage: 20 MG, 2X/DAY
     Dates: start: 20201210
  5. TRASTUZUMAB. [Suspect]
     Active Substance: TRASTUZUMAB
     Indication: HER2 POSITIVE BREAST CANCER
     Dosage: 600 MG, EVERY 3 WEEKS
     Route: 058
  6. LETROZOLE. [Concomitant]
     Active Substance: LETROZOLE
     Dosage: 2.5 G
     Dates: start: 20120701

REACTIONS (2)
  - Urticaria [Recovered/Resolved]
  - Herpangina [Recovered/Resolved]

NARRATIVE: CASE EVENT DATE: 20210222
